FAERS Safety Report 8030997-2 (Version None)
Quarter: 2012Q1

REPORT INFORMATION
  Report Type: 
  Country: None (occurrence: None)
  Receive Date: 20120109
  Receipt Date: 20120102
  Transmission Date: 20120608
  Serious: Yes (Death)
  Sender: FDA-Public Use
  Company Number: FR-ALEXION PHARMACEUTICALS INC.-A201200008

PATIENT
  Sex: Female

DRUGS (2)
  1. SOLIRIS [Suspect]
     Indication: OFF LABEL USE
  2. SOLIRIS [Suspect]
     Indication: THROMBOTIC MICROANGIOPATHY
     Dosage: UNK
     Route: 042

REACTIONS (1)
  - PANCREATITIS [None]
